FAERS Safety Report 4443644-3 (Version None)
Quarter: 2004Q3

REPORT INFORMATION
  Report Type: 
  Country: None (occurrence: None)
  Receive Date: 20040827
  Receipt Date: 20040811
  Transmission Date: 20050211
  Serious: Yes (Death)
  Sender: FDA-Public Use
  Company Number: B0342002A

PATIENT

DRUGS (1)
  1. PAXIL [Suspect]

REACTIONS (1)
  - GASTROINTESTINAL HAEMORRHAGE [None]
